FAERS Safety Report 23136427 (Version 3)
Quarter: 2023Q4

REPORT INFORMATION
  Report Type: Spontaneous
  Country: US (occurrence: US)
  Receive Date: 20231102
  Receipt Date: 20231205
  Transmission Date: 20240109
  Serious: No
  Sender: FDA-Public Use
  Company Number: US-BoehringerIngelheim-2023-BI-270572

PATIENT
  Age: 82 Year
  Sex: Male

DRUGS (1)
  1. COMBIVENT RESPIMAT [Suspect]
     Active Substance: ALBUTEROL SULFATE\IPRATROPIUM BROMIDE
     Indication: Product used for unknown indication
     Dosage: 1 PUFF ALMOST EVERY HOUR

REACTIONS (3)
  - Cardiac disorder [Not Recovered/Not Resolved]
  - Product delivery mechanism issue [Unknown]
  - Extra dose administered [Unknown]
